FAERS Safety Report 20461914 (Version 1)
Quarter: 2022Q1

REPORT INFORMATION
  Report Type: Spontaneous
  Country: US (occurrence: US)
  Receive Date: 20220211
  Receipt Date: 20220211
  Transmission Date: 20220423
  Serious: No
  Sender: FDA-Public Use
  Company Number: US-009507513-2201USA005857

PATIENT
  Sex: Female

DRUGS (3)
  1. NOXAFIL [Interacting]
     Active Substance: POSACONAZOLE
     Route: 048
  2. VENCLEXTA [Interacting]
     Active Substance: VENETOCLAX
     Dosage: 200 MILLIGRAM (2 TABLETS), ONCE DAILY WITH FOOD AND A FULL GLASS OF WATER
     Route: 048
  3. VENCLEXTA [Interacting]
     Active Substance: VENETOCLAX
     Dosage: 100 MILLIGRAM, ONCE DAILY
     Route: 048

REACTIONS (1)
  - Drug interaction [Unknown]
